FAERS Safety Report 11604593 (Version 1)
Quarter: 2015Q4

REPORT INFORMATION
  Report Type: Spontaneous
  Country: US (occurrence: None)
  Receive Date: 20151006
  Receipt Date: 20151006
  Transmission Date: 20160304
  Serious: Yes (Disabling)
  Sender: FDA-Public Use
  Company Number: None

PATIENT
  Age: 56 Year
  Sex: Female
  Weight: 83.92 kg

DRUGS (13)
  1. MELATONIN [Concomitant]
     Active Substance: MELATONIN
  2. BETAMETHASONE VALERATE LOTION 0.1% [Concomitant]
  3. ELOXATIN [Suspect]
     Active Substance: OXALIPLATIN
     Indication: NEOPLASM MALIGNANT
     Dosage: INJECTION THRU PORT IN CHEST
     Dates: start: 20100901, end: 20110801
  4. CLONAZEPAM. [Concomitant]
     Active Substance: CLONAZEPAM
  5. DULCOLAX NOS [Concomitant]
     Active Substance: BISACODYL OR DOCUSATE SODIUM
  6. ELOXATIN [Suspect]
     Active Substance: OXALIPLATIN
     Indication: NEOPLASM
     Dosage: INJECTION THRU PORT IN CHEST
     Dates: start: 20100901, end: 20110801
  7. CITRACAL CALCIUM [Concomitant]
  8. DIFLORASONE DIACETATE. [Concomitant]
     Active Substance: DIFLORASONE DIACETATE
  9. ATENOLOL. [Concomitant]
     Active Substance: ATENOLOL
  10. AMITRIPTYLINE [Concomitant]
     Active Substance: AMITRIPTYLINE
  11. VITAMIN B6 [Concomitant]
     Active Substance: PYRIDOXINE HYDROCHLORIDE
  12. LISINOPRIL AND HYDROCHLOROTHIAZIDE [Concomitant]
     Active Substance: HYDROCHLOROTHIAZIDE\LISINOPRIL
  13. LOVASTATIN. [Concomitant]
     Active Substance: LOVASTATIN

REACTIONS (4)
  - Chest pain [None]
  - Tinnitus [None]
  - Neuropathy peripheral [None]
  - Temperature intolerance [None]

NARRATIVE: CASE EVENT DATE: 20100901
